FAERS Safety Report 4496781-1 (Version None)
Quarter: 2004Q4

REPORT INFORMATION
  Report Type: 
  Country: None (occurrence: None)
  Receive Date: 20041109
  Receipt Date: 20041103
  Transmission Date: 20050328
  Serious: Yes (Disabling)
  Sender: FDA-Public Use
  Company Number: US-MERCK-0411USA00641

PATIENT
  Age: 48 Year
  Sex: Female

DRUGS (3)
  1. VIOXX [Suspect]
     Indication: PAIN MANAGEMENT
     Route: 048
     Dates: start: 20030101
  2. VIOXX [Suspect]
     Indication: EXOSTOSIS
     Route: 048
     Dates: start: 20030101
  3. PAXIL [Concomitant]
     Route: 065

REACTIONS (1)
  - DYSPNOEA [None]
